FAERS Safety Report 5481848-1 (Version None)
Quarter: 2007Q4

REPORT INFORMATION
  Report Type: 
  Country: None (occurrence: None)
  Receive Date: 20071010
  Receipt Date: 20070925
  Transmission Date: 20080405
  Serious: No
  Sender: FDA-Public Use
  Company Number: US-BOEHRINGER INGELHEIM PHARMACEUTICALS, INC.-2007-BP-21745PF

PATIENT
  Sex: Female

DRUGS (3)
  1. SPIRIVA [Suspect]
     Indication: CHRONIC OBSTRUCTIVE PULMONARY DISEASE
     Route: 055
     Dates: start: 20051201
  2. ADVAIR DISKUS 100/50 [Concomitant]
     Dates: start: 20070401
  3. OXYGEN [Concomitant]
     Dates: end: 20070401

REACTIONS (2)
  - BACK PAIN [None]
  - DRUG INEFFECTIVE [None]
